FAERS Safety Report 5363090-8 (Version None)
Quarter: 2007Q2

REPORT INFORMATION
  Report Type: 
  Country: None (occurrence: None)
  Receive Date: 20070615
  Receipt Date: 20070508
  Transmission Date: 20071010
  Serious: Yes (Hospitalization)
  Sender: FDA-Public Use
  Company Number: 8022198

PATIENT
  Age: 18 Year
  Sex: Female
  Weight: 70.1 kg

DRUGS (4)
  1. KEPPRA [Suspect]
     Indication: COMPLEX PARTIAL SEIZURES
     Dosage: 500 MG 2/D; PO
     Route: 048
     Dates: start: 20070117, end: 20070124
  2. KEPPRA [Suspect]
     Indication: COMPLEX PARTIAL SEIZURES
     Dosage: PO
     Route: 048
  3. EPILIM [Concomitant]
  4. RISPERIDONE [Concomitant]

REACTIONS (10)
  - AGITATION [None]
  - BALANCE DISORDER [None]
  - CYANOSIS [None]
  - DYSARTHRIA [None]
  - ILL-DEFINED DISORDER [None]
  - IRRITABILITY [None]
  - LETHARGY [None]
  - PERIPHERAL COLDNESS [None]
  - SOMNOLENCE [None]
  - TREMOR [None]
